FAERS Safety Report 9633446 (Version 1)
Quarter: 2013Q4

REPORT INFORMATION
  Report Type: Spontaneous
  Country: US (occurrence: US)
  Receive Date: 20131021
  Receipt Date: 20131021
  Transmission Date: 20140711
  Serious: Yes (Other)
  Sender: FDA-Public Use
  Company Number: US-SA-2013SA104193

PATIENT
  Age: 60 Year
  Sex: Female

DRUGS (4)
  1. LANTUS [Suspect]
     Route: 065
  2. LANTUS SOLOSTAR [Suspect]
     Indication: TYPE 1 DIABETES MELLITUS
     Dosage: PRODUCT START DATE- 4 MONTHS AGO?FREQUENCY- ONCE NIGHT DOSE:35 UNIT(S)
     Route: 065
  3. NOVOLOG [Suspect]
     Route: 065
  4. SOLOSTAR [Concomitant]

REACTIONS (2)
  - Eye haemorrhage [Unknown]
  - Blindness transient [Unknown]
